FAERS Safety Report 18276987 (Version 1)
Quarter: 2020Q3

REPORT INFORMATION
  Report Type: Spontaneous
  Country: US (occurrence: US)
  Receive Date: 20200916
  Receipt Date: 20200916
  Transmission Date: 20201103
  Serious: Yes (Death)
  Sender: FDA-Public Use
  Company Number: None

PATIENT
  Age: 66 Year
  Sex: Female
  Weight: 114.76 kg

DRUGS (1)
  1. REMDESIVIR. [Suspect]
     Active Substance: REMDESIVIR

REACTIONS (5)
  - SARS-CoV-2 antibody test positive [None]
  - Azotaemia [None]
  - Condition aggravated [None]
  - Haemodialysis [None]
  - Bilevel positive airway pressure [None]

NARRATIVE: CASE EVENT DATE: 20200914
